FAERS Safety Report 9473892 (Version 1)
Quarter: 2013Q3

REPORT INFORMATION
  Report Type: Spontaneous
  Country: SE (occurrence: None)
  Receive Date: 20130820
  Receipt Date: 20130820
  Transmission Date: 20140515
  Serious: Yes (Hospitalization)
  Sender: FDA-Public Use
  Company Number: B0915627A

PATIENT
  Age: 60 Year
  Sex: Female
  Weight: 169.4 kg

DRUGS (16)
  1. ACYCLOVIR [Suspect]
     Indication: HERPES SIMPLEX MENINGOENCEPHALITIS
  2. VALACYCLOVIR HYDROCHLORIDE [Suspect]
     Indication: ORAL HERPES
  3. AMITRIPTYLINE [Concomitant]
  4. CALCIUM WITH VITAMIN D [Concomitant]
  5. ENALAPRIL [Concomitant]
  6. GABAPENTIN [Concomitant]
  7. METOPROLOL [Concomitant]
  8. BACLOFEN [Concomitant]
  9. METHENAMINE [Concomitant]
  10. FRUSEMIDE [Concomitant]
  11. VENLAFAXINE HYDROCHLORIDE) [Concomitant]
  12. MONTELUKSDT SODIUM [Concomitant]
  13. FLUTICASONE +SALMETEROL [Concomitant]
  14. AMPICILLIN TRIHYDRATE [Concomitant]
  15. BETAMETHASONE [Concomitant]
  16. CEFOTAXIME [Concomitant]

REACTIONS (9)
  - Vomiting [None]
  - Headache [None]
  - Meningitis bacterial [None]
  - Encephalitis [None]
  - Atonic urinary bladder [None]
  - Urinary retention [None]
  - Metabolic disorder [None]
  - Toxicity to various agents [None]
  - Neuropsychiatric syndrome [None]
